FAERS Safety Report 11067362 (Version 1)
Quarter: 2015Q2

REPORT INFORMATION
  Report Type: Report from Study
  Country: US (occurrence: US)
  Receive Date: 20150426
  Receipt Date: 20150426
  Transmission Date: 20150821
  Serious: Yes (Death, Hospitalization, Other)
  Sender: FDA-Public Use
  Company Number: US-BRISTOL-MYERS SQUIBB COMPANY-15724040

PATIENT
  Age: 77 Year
  Sex: Male

DRUGS (5)
  1. FENTANYL TRANSDERMAL SYSTEM [Concomitant]
     Active Substance: FENTANYL
     Dosage: 75 ?G, INTERMITTENT
     Dates: start: 20110304
  2. IPILIMUMAB [Suspect]
     Active Substance: IPILIMUMAB
     Indication: PROSTATE CANCER
     Dosage: STRENGTH:5MG/ML 168ML,07FEB11 168.2ML,01MAR11 169 ML,21MAR11 161 ML,11APR11 155 ML.
     Route: 042
     Dates: start: 20110207, end: 20110411
  3. NYSTATIN SWISH [Concomitant]
     Dosage: 5 ML, QID
  4. ACETAMINOPHEN. [Concomitant]
     Active Substance: ACETAMINOPHEN
     Dosage: 1000 MG, TID
  5. SENNA-S [Concomitant]
     Active Substance: DOCUSATE SODIUM\SENNOSIDES
     Dosage: 1DF:2 TABS

REACTIONS (7)
  - Lung infiltration [Not Recovered/Not Resolved]
  - Decreased appetite [Unknown]
  - Constipation [Unknown]
  - Abdominal distension [Unknown]
  - Bone pain [Not Recovered/Not Resolved]
  - Malignant neoplasm progression [Fatal]
  - Metastatic pain [Not Recovered/Not Resolved]

NARRATIVE: CASE EVENT DATE: 20110428
